FAERS Safety Report 7960068-2 (Version None)
Quarter: 2011Q4

REPORT INFORMATION
  Report Type: 
  Country: None (occurrence: None)
  Receive Date: 20111206
  Receipt Date: 20111122
  Transmission Date: 20120403
  Serious: Yes (Hospitalization)
  Sender: FDA-Public Use
  Company Number: PHHY2011US29589

PATIENT
  Sex: Female

DRUGS (14)
  1. NEURONTIN [Concomitant]
  2. PRILOSEC [Concomitant]
  3. DIGOXIN [Concomitant]
  4. ARIXTRA [Concomitant]
  5. METOPROLOL TARTRATE [Concomitant]
  6. REVLIMID [Concomitant]
  7. LASIX [Concomitant]
  8. ERGOCALCIFEROL [Concomitant]
  9. EXJADE [Suspect]
     Indication: IRON OVERLOAD
     Dosage: 500 MG, BID
     Route: 048
     Dates: start: 20110503, end: 20110712
  10. REGELAN [Concomitant]
  11. GLIPIZIDE [Concomitant]
  12. TRAMADOL HCL [Concomitant]
  13. TRAZODONE HCL [Concomitant]
  14. PROMETHAZINE [Concomitant]

REACTIONS (5)
  - HYPOTENSION [None]
  - INFLUENZA [None]
  - GASTRIC DISORDER [None]
  - DIARRHOEA [None]
  - MALAISE [None]
